FAERS Safety Report 20187484 (Version 1)
Quarter: 2021Q4

REPORT INFORMATION
  Report Type: Spontaneous
  Country: US (occurrence: None)
  Receive Date: 20211214
  Receipt Date: 20211214
  Transmission Date: 20220303
  Serious: Yes (Other)
  Sender: FDA-Public Use
  Company Number: None

PATIENT
  Age: 72 Year
  Sex: Female
  Weight: 570.03 kg

DRUGS (1)
  1. NEBIVOLOL [Suspect]
     Active Substance: NEBIVOLOL
     Indication: Insurance issue
     Dosage: FREQUENCY : TWICE A DAY;?
     Route: 048
     Dates: start: 20211208, end: 20211209

REACTIONS (5)
  - Headache [None]
  - Vomiting [None]
  - Nausea [None]
  - Feeling abnormal [None]
  - Heart rate decreased [None]

NARRATIVE: CASE EVENT DATE: 20211209
